FAERS Safety Report 7788976-6 (Version None)
Quarter: 2011Q3

REPORT INFORMATION
  Report Type: 
  Country: None (occurrence: None)
  Receive Date: 20110930
  Receipt Date: 20110926
  Transmission Date: 20111222
  Serious: Yes (Life-Threatening, Hospitalization, Other)
  Sender: FDA-Public Use
  Company Number: PHHY2011JP63684

PATIENT
  Sex: Female
  Weight: 49 kg

DRUGS (4)
  1. ZOMETA [Suspect]
     Indication: METASTASES TO BONE
     Route: 041
     Dates: start: 20101210, end: 20110606
  2. CHEMOTHERAPEUTICS NOS [Concomitant]
  3. CYCLOPHOSPHAMIDE [Concomitant]
     Indication: METASTASES TO LIVER
     Dosage: 830 MG,
     Route: 041
     Dates: start: 20110606
  4. EPIRUBICIN HYDROCHLORIDE [Concomitant]
     Indication: METASTASES TO LIVER
     Dosage: 120 MG, UNK
     Route: 041
     Dates: start: 20110606

REACTIONS (8)
  - C-REACTIVE PROTEIN INCREASED [None]
  - OEDEMA PERIPHERAL [None]
  - PSOAS ABSCESS [None]
  - SEPSIS [None]
  - WHITE BLOOD CELL COUNT INCREASED [None]
  - OSTEOMYELITIS [None]
  - BACK PAIN [None]
  - WHITE BLOOD CELL COUNT DECREASED [None]
